FAERS Safety Report 8283564-X (Version None)
Quarter: 2012Q2

REPORT INFORMATION
  Report Type: 
  Country: None (occurrence: None)
  Receive Date: 20120413
  Receipt Date: 20120405
  Transmission Date: 20120825
  Serious: Yes (Life-Threatening, Hospitalization)
  Sender: FDA-Public Use
  Company Number: US-MILLENNIUM PHARMACEUTICALS, INC.-2012-02022

PATIENT
  Age: 61 Year
  Sex: Female

DRUGS (3)
  1. VELCADE [Suspect]
     Indication: AMYLOIDOSIS
     Dosage: UNK
     Dates: start: 20111003, end: 20120113
  2. DEXAMETHASONE [Suspect]
     Indication: AMYLOIDOSIS
     Dosage: UNK
     Dates: start: 20111003, end: 20120113
  3. MELPHALAN HYDROCHLORIDE [Suspect]
     Indication: AMYLOIDOSIS
     Dosage: 140 UNK, UNK
     Dates: start: 20111003, end: 20120113

REACTIONS (3)
  - RENAL FAILURE ACUTE [None]
  - HYPERKALAEMIA [None]
  - DEPRESSED LEVEL OF CONSCIOUSNESS [None]
